FAERS Safety Report 25438503 (Version 1)
Quarter: 2025Q2

REPORT INFORMATION
  Report Type: Spontaneous
  Country: US (occurrence: US)
  Receive Date: 20250616
  Receipt Date: 20250616
  Transmission Date: 20250716
  Serious: Yes (Hospitalization, Other)
  Sender: AUROBINDO
  Company Number: US-MLMSERVICE-20250519-PI511984-00271-1

PATIENT
  Age: 55 Year
  Sex: Female

DRUGS (12)
  1. PREDNISONE [Suspect]
     Active Substance: PREDNISONE
     Indication: Pericarditis
     Route: 065
  2. PREDNISONE [Suspect]
     Active Substance: PREDNISONE
     Dosage: 10 MILLIGRAM, ONCE A DAY
     Route: 065
  3. PREDNISONE [Suspect]
     Active Substance: PREDNISONE
     Dosage: 40 MILLIGRAM, ONCE A DAY
     Route: 065
  4. PREDNISONE [Suspect]
     Active Substance: PREDNISONE
     Dosage: 10 MILLIGRAM, ONCE A DAY
     Route: 065
  5. PREDNISONE [Suspect]
     Active Substance: PREDNISONE
     Dosage: 30 MILLIGRAM, ONCE A DAY
     Route: 065
     Dates: end: 2023
  6. IBUPROFEN [Concomitant]
     Active Substance: IBUPROFEN
     Indication: Pericarditis
     Dosage: 200 MILLIGRAM, 3 TIMES A DAY
     Route: 065
  7. IBUPROFEN [Concomitant]
     Active Substance: IBUPROFEN
     Dosage: 800 UNK, 3 TIMES A DAY
     Route: 065
  8. COLCHICINE [Concomitant]
     Active Substance: COLCHICINE
     Indication: Pericarditis
     Dosage: 0.6 MILLIGRAM, ONCE A DAY
     Route: 065
  9. CALCIUM [Concomitant]
     Active Substance: CALCIUM
     Indication: Supplementation therapy
     Route: 065
  10. VITAMIN D [Concomitant]
     Active Substance: VITAMIN D NOS
     Indication: Supplementation therapy
     Route: 065
  11. RILONACEPT [Concomitant]
     Active Substance: RILONACEPT
     Indication: Pericarditis
     Dosage: 320 MILLIGRAM, EVERY WEEK (LOADING DOSE)
     Route: 065
     Dates: start: 2023
  12. RILONACEPT [Concomitant]
     Active Substance: RILONACEPT
     Dosage: 160 MILLIGRAM, EVERY WEEK (LOADING DOSE)
     Dates: start: 2023

REACTIONS (3)
  - Osteopenia [Unknown]
  - Condition aggravated [Recovering/Resolving]
  - Drug ineffective [Unknown]
